FAERS Safety Report 6490487-5 (Version None)
Quarter: 2009Q4

REPORT INFORMATION
  Report Type: 
  Country: None (occurrence: None)
  Receive Date: 20091209
  Receipt Date: 20091119
  Transmission Date: 20100525
  Serious: Yes (Hospitalization)
  Sender: FDA-Public Use
  Company Number: 1-20696929

PATIENT
  Age: 55 Year
  Sex: Female

DRUGS (13)
  1. WARFARIN SODIUM [Suspect]
     Indication: ANTIPHOSPHOLIPID SYNDROME
     Dosage: 3 MG DAILY, ORAL
     Route: 048
     Dates: end: 20091103
  2. LIPITOR [Concomitant]
  3. LISINOPRIL [Concomitant]
  4. METOPROLOL SUCCINATE [Concomitant]
  5. PREDNISONE [Concomitant]
  6. OMEPRAZOLE [Concomitant]
  7. BUPROPION HCL [Concomitant]
  8. CITALOPRAM HYDROBROMIDE [Concomitant]
  9. LORAZEPAM [Concomitant]
  10. MIRTAZAPINE [Concomitant]
  11. ZIPRASIDONE HCL [Concomitant]
  12. NEPHROCAPS [Concomitant]
  13. RENVELA [Concomitant]

REACTIONS (3)
  - FALL [None]
  - FOOT FRACTURE [None]
  - INTERNATIONAL NORMALISED RATIO INCREASED [None]
